FAERS Safety Report 16311874 (Version 2)
Quarter: 2019Q3

REPORT INFORMATION
  Report Type: Report from Study
  Country: None (occurrence: US)
  Receive Date: 20190514
  Receipt Date: 20190909
  Transmission Date: 20191004
  Serious: Yes (Hospitalization, Other)
  Sender: FDA-Public Use
  Company Number: US-ABBVIE-19K-163-2779384-00

PATIENT
  Age: 52 Year
  Sex: Female
  Weight: 131.66 kg

DRUGS (2)
  1. HUMIRA [Suspect]
     Active Substance: ADALIMUMAB
     Indication: RHEUMATOID ARTHRITIS
     Route: 058
     Dates: start: 201801
  2. HUMIRA [Suspect]
     Active Substance: ADALIMUMAB
     Dosage: DOSE INCREASED
     Route: 058

REACTIONS (5)
  - Device breakage [Not Recovered/Not Resolved]
  - Drug ineffective [Recovered/Resolved]
  - Impaired healing [Not Recovered/Not Resolved]
  - Joint dislocation [Not Recovered/Not Resolved]
  - Citrobacter infection [Not Recovered/Not Resolved]

NARRATIVE: CASE EVENT DATE: 201808
